FAERS Safety Report 20483554 (Version 1)
Quarter: 2022Q1

REPORT INFORMATION
  Report Type: Spontaneous
  Country: RU (occurrence: RU)
  Receive Date: 20220217
  Receipt Date: 20220217
  Transmission Date: 20220423
  Serious: Yes (Death)
  Sender: FDA-Public Use
  Company Number: RU-JNJFOC-20220221325

PATIENT
  Age: 21 Year
  Sex: Female

DRUGS (1)
  1. UPTRAVI [Suspect]
     Active Substance: SELEXIPAG
     Indication: Pulmonary arterial hypertension
     Dosage: 200 MCG 1 TAB 2 TIMES A DAY DURING 1-2 WEEKS, FOLLOWED BY 1600 MCG 2 TIMES A DAY
     Route: 048

REACTIONS (1)
  - Death [Fatal]
